FAERS Safety Report 9295963 (Version 3)
Quarter: 2013Q2

REPORT INFORMATION
  Report Type: Spontaneous
  Country: US (occurrence: US)
  Receive Date: 20130517
  Receipt Date: 20130619
  Transmission Date: 20140414
  Serious: Yes (Disabling)
  Sender: FDA-Public Use
  Company Number: US-009507513-1305USA010605

PATIENT
  Age: 44 Year
  Sex: Female

DRUGS (4)
  1. NASONEX [Suspect]
     Dosage: UNK
     Route: 045
  2. CALAN TABLETS [Suspect]
     Dosage: 1 (DF), TID
     Route: 048
  3. NEURONTIN [Suspect]
     Dosage: 1 (DF), BID
     Route: 048
  4. PROTONIX [Suspect]
     Dosage: BID

REACTIONS (1)
  - Adverse event [Unknown]
